FAERS Safety Report 8272915-8 (Version None)
Quarter: 2012Q2

REPORT INFORMATION
  Report Type: 
  Country: None (occurrence: None)
  Receive Date: 20120409
  Receipt Date: 20120409
  Transmission Date: 20120825
  Serious: Yes (Other)
  Sender: FDA-Public Use
  Company Number: None

PATIENT
  Age: 30 Year
  Sex: Female
  Weight: 80.7403 kg

DRUGS (2)
  1. SEASONIQUE [Suspect]
     Indication: CONTRACEPTION
  2. SEASONIQUE [Suspect]
     Indication: HAEMORRHAGE

REACTIONS (4)
  - PRODUCT SUBSTITUTION ISSUE [None]
  - ANAEMIA [None]
  - METRORRHAGIA [None]
  - MENORRHAGIA [None]
